FAERS Safety Report 18924164 (Version 3)
Quarter: 2022Q1

REPORT INFORMATION
  Report Type: Other
  Country: HU (occurrence: HU)
  Receive Date: 20210222
  Receipt Date: 20220323
  Transmission Date: 20220423
  Serious: Yes (Death)
  Sender: FDA-Public Use
  Company Number: HU-BOEHRINGERINGELHEIM-2021-BI-084379

PATIENT

DRUGS (2)
  1. ALTEPLASE [Suspect]
     Active Substance: ALTEPLASE
     Indication: Peripheral ischaemia
     Dosage: 5 MG IN BOLUS, THEN CONTINUOUS ADMINISTRATION WITH 2 MG/H (MEDIAN DOSES)?MEDIAN DOSE OF ALTEPLASE BO
     Route: 040
  2. ALTEPLASE [Suspect]
     Active Substance: ALTEPLASE
     Dosage: THEN CONTINUOUS ADMINISTRATION WITH 2 MG/H (MEDIAN DOSES)
     Route: 065

REACTIONS (1)
  - Death [Fatal]
